FAERS Safety Report 7389715-3 (Version None)
Quarter: 2011Q2

REPORT INFORMATION
  Report Type: 
  Country: None (occurrence: None)
  Receive Date: 20110401
  Receipt Date: 20110317
  Transmission Date: 20111010
  Serious: No
  Sender: FDA-Public Use
  Company Number: US-JNJFOC-20110308443

PATIENT
  Sex: Male

DRUGS (8)
  1. FENTANYL-100 [Suspect]
     Route: 062
  2. FENTANYL-100 [Suspect]
     Route: 062
  3. FENTANYL-100 [Suspect]
     Dosage: 3 PATCHES OF 25UG/HR
     Route: 062
  4. ATENOLOL [Concomitant]
     Indication: HYPERTENSION
     Route: 048
  5. KLONOPIN [Concomitant]
     Indication: ANXIETY
     Route: 048
  6. FENTANYL-100 [Suspect]
     Indication: ARTHROPATHY
     Dosage: 3 PATCHES OF 25UG/HR
     Route: 062
  7. FENTANYL-100 [Suspect]
     Indication: HEADACHE
     Dosage: 3 PATCHES OF 25UG/HR
     Route: 062
  8. FENTANYL-100 [Suspect]
     Indication: ANKLE FRACTURE
     Route: 062

REACTIONS (11)
  - DRUG DISPENSING ERROR [None]
  - NERVOUSNESS [None]
  - ABNORMAL LOSS OF WEIGHT [None]
  - DIZZINESS [None]
  - ABDOMINAL PAIN UPPER [None]
  - NAUSEA [None]
  - FEELING ABNORMAL [None]
  - POOR QUALITY SLEEP [None]
  - CONSTIPATION [None]
  - DRUG TOLERANCE [None]
  - DRUG EFFECT INCREASED [None]
